FAERS Safety Report 18329437 (Version 1)
Quarter: 2020Q3

REPORT INFORMATION
  Report Type: Spontaneous
  Country: US (occurrence: US)
  Receive Date: 20200927
  Receipt Date: 20200927
  Transmission Date: 20201103
  Serious: No
  Sender: FDA-Public Use
  Company Number: None

PATIENT
  Age: 1 Decade
  Sex: Male

DRUGS (7)
  1. VANCOMYCIN [Suspect]
     Active Substance: VANCOMYCIN
  2. IMMUNOGLOBULINS, INTRAVENOUS [Suspect]
     Active Substance: HUMAN IMMUNOGLOBULIN G
     Dosage: ?          OTHER ROUTE:IV?
  3. CEFTRIAXONE. [Suspect]
     Active Substance: CEFTRIAXONE
  4. ASPIRIN. [Suspect]
     Active Substance: ASPIRIN
     Route: 048
  5. CLINDAMYCIN. [Suspect]
     Active Substance: CLINDAMYCIN
  6. MEROPENEM. [Suspect]
     Active Substance: MEROPENEM
  7. TOCILIZUMAB. [Suspect]
     Active Substance: TOCILIZUMAB
     Indication: COVID-19
     Dosage: ?          OTHER FREQUENCY:OVER 2 HOURS;OTHER ROUTE:IV?
     Dates: start: 2020

REACTIONS (2)
  - Off label use [None]
  - Hypotension [None]
